FAERS Safety Report 9434661 (Version 1)
Quarter: 2013Q3

REPORT INFORMATION
  Report Type: Spontaneous
  Country: FR (occurrence: FR)
  Receive Date: 20130801
  Receipt Date: 20130801
  Transmission Date: 20140515
  Serious: Yes (Life-Threatening, Hospitalization, Other)
  Sender: FDA-Public Use
  Company Number: FR-ELI_LILLY_AND_COMPANY-FR201307008209

PATIENT
  Age: 85 Year
  Sex: Female

DRUGS (4)
  1. HUMALOG LISPRO [Suspect]
     Indication: TYPE 2 DIABETES MELLITUS
     Dosage: UNK, TID
     Route: 058
  2. HUMALOG LISPRO [Suspect]
     Dosage: UNK
     Route: 058
  3. LANTUS [Suspect]
     Indication: TYPE 2 DIABETES MELLITUS
     Dosage: 1 DF, QD
  4. LANTUS [Suspect]
     Dosage: UNK

REACTIONS (6)
  - Hypoglycaemic unconsciousness [Recovered/Resolved]
  - Hypoglycaemic coma [Recovered/Resolved]
  - Fall [Recovered/Resolved with Sequelae]
  - Rib fracture [Recovered/Resolved with Sequelae]
  - Hypoglycaemic unconsciousness [Recovered/Resolved]
  - Dehydration [Unknown]
